FAERS Safety Report 9850830 (Version 4)
Quarter: 2016Q1

REPORT INFORMATION
  Report Type: Report from Study
  Country: US (occurrence: US)
  Receive Date: 20140128
  Receipt Date: 20160203
  Transmission Date: 20160526
  Serious: Yes (Death, Hospitalization)
  Sender: FDA-Public Use
  Company Number: US-ACTELION-A-US2013-92955

PATIENT
  Age: 71 Year
  Sex: Female

DRUGS (2)
  1. TYVASO [Concomitant]
     Active Substance: TREPROSTINIL
  2. TRACLEER [Suspect]
     Active Substance: BOSENTAN
     Indication: PULMONARY ARTERIAL HYPERTENSION
     Dosage: UNK
     Route: 048

REACTIONS (5)
  - Implantable defibrillator insertion [Unknown]
  - Dizziness [Unknown]
  - Death [Fatal]
  - Device malfunction [Unknown]
  - Palpitations [Unknown]

NARRATIVE: CASE EVENT DATE: 20131219
